FAERS Safety Report 8393559-3 (Version None)
Quarter: 2012Q2

REPORT INFORMATION
  Report Type: 
  Country: None (occurrence: None)
  Receive Date: 20120530
  Receipt Date: 20120516
  Transmission Date: 20120825
  Serious: Yes (Other)
  Sender: FDA-Public Use
  Company Number: TR-AMGEN-TURSP2012011351

PATIENT
  Age: 31 Year
  Sex: Male

DRUGS (3)
  1. ENBREL [Suspect]
     Dosage: 50 MG, WEEKLY, VIAL FORM
     Route: 058
     Dates: start: 20090819
  2. ENBREL [Suspect]
     Indication: ANKYLOSING SPONDYLITIS
     Dosage: 50 MG, WEEKLY, MYCLIC
     Route: 058
     Dates: start: 20120401
  3. ENBREL [Suspect]
     Dosage: 50 MG, WEEKLY, MYCLIC
     Route: 058
     Dates: start: 20110823, end: 20120112

REACTIONS (5)
  - GINGIVAL PAIN [None]
  - GINGIVAL ABSCESS [None]
  - PALATAL DISORDER [None]
  - RESTLESSNESS [None]
  - FEAR [None]
